FAERS Safety Report 10197056 (Version 3)
Quarter: 2014Q2

REPORT INFORMATION
  Report Type: Spontaneous
  Country: BR (occurrence: BR)
  Receive Date: 20140527
  Receipt Date: 20140610
  Transmission Date: 20141212
  Serious: Yes (Life-Threatening, Hospitalization)
  Sender: FDA-Public Use
  Company Number: BR-MALLINCKRODT-T201402271

PATIENT
  Age: 20 Year
  Sex: Male

DRUGS (1)
  1. OPTIMARK IN PLASTIC SYRINGES [Suspect]
     Indication: NUCLEAR MAGNETIC RESONANCE IMAGING
     Dosage: 10 ML, SINGLE
     Route: 042
     Dates: start: 20140516, end: 20140516

REACTIONS (3)
  - Cardiac arrest [Recovered/Resolved]
  - Urticaria [Recovered/Resolved]
  - Papule [Recovered/Resolved]
